FAERS Safety Report 8726220 (Version 2)
Quarter: 2012Q4

REPORT INFORMATION
  Report Type: Report from Study
  Country: CH (occurrence: CH)
  Receive Date: 20120816
  Receipt Date: 20120903
  Transmission Date: 20130627
  Serious: Yes (Hospitalization)
  Sender: FDA-Public Use
  Company Number: CH-PFIZER INC-2012194674

PATIENT
  Age: 34 Year
  Sex: Male
  Weight: 87.7 kg

DRUGS (12)
  1. GENOTROPIN [Suspect]
     Indication: HYPOPITUITARISM
     Dosage: 0.6 mg, 1x/day
     Route: 058
     Dates: start: 20071217, end: 20111212
  2. MINIRIN [Suspect]
     Indication: BLOOD ANTIDIURETIC HORMONE DECREASED
     Dosage: UNK
     Dates: start: 19891115
  3. MINIRIN [Suspect]
     Indication: DIABETES INSIPIDUS
  4. LEVOTHYROXINE [Concomitant]
     Indication: BLOOD THYROID STIMULATING HORMONE DECREASED
     Dosage: UNK
     Dates: start: 19900215
  5. TESTOVIRON [Concomitant]
     Indication: BLOOD LUTEINISING HORMONE DECREASED
     Dosage: UNK
     Route: 030
     Dates: start: 19930515, end: 20111212
  6. TESTOVIRON [Concomitant]
     Indication: BLOOD FOLLICLE STIMULATING HORMONE DECREASED
  7. TESTOVIRON [Concomitant]
     Indication: HYPOGONADISM
  8. ELTROXINE [Concomitant]
     Indication: BLOOD THYROID STIMULATING HORMONE DECREASED
     Dosage: UNK
     Dates: start: 19981017
  9. CHORIONIC GONADOTROPHIN [Concomitant]
     Indication: BLOOD LUTEINISING HORMONE DECREASED
     Dosage: UNK
     Dates: start: 20081001, end: 2010
  10. CHORIONIC GONADOTROPHIN [Concomitant]
     Indication: BLOOD FOLLICLE STIMULATING HORMONE DECREASED
  11. TIROSINT [Concomitant]
     Indication: BLOOD THYROID STIMULATING HORMONE DECREASED
     Dosage: UNK
     Dates: start: 20081101
  12. FOSTIMON [Concomitant]
     Indication: BLOOD FOLLICLE STIMULATING HORMONE DECREASED
     Dosage: UNK
     Dates: start: 20090127, end: 2010

REACTIONS (3)
  - Hyponatraemia [Recovered/Resolved]
  - Confusional state [Recovered/Resolved]
  - Amnesia [Unknown]
